FAERS Safety Report 9192794 (Version 3)
Quarter: 2017Q4

REPORT INFORMATION
  Report Type: Report from Study
  Country: HU (occurrence: HU)
  Receive Date: 20130327
  Receipt Date: 20171213
  Transmission Date: 20180321
  Serious: Yes (Death, Hospitalization, Other)
  Sender: FDA-Public Use
  Company Number: HU-BRISTOL-MYERS SQUIBB COMPANY-18704023

PATIENT
  Age: 58 Year
  Sex: Male

DRUGS (8)
  1. BLINDED IPILIMUMAB [Suspect]
     Active Substance: IPILIMUMAB
     Indication: NON-SMALL CELL LUNG CANCER
     Dosage: 702 MG, QCYCLE
     Route: 042
     Dates: start: 20130214, end: 20130214
  2. BLINDED IPILIMUMAB [Suspect]
     Active Substance: IPILIMUMAB
     Indication: NON-SMALL CELL LUNG CANCER
     Dosage: 290.5 MG, QCYCLE
     Route: 042
     Dates: start: 20130214, end: 20130214
  3. BLINDED PACLITAXEL [Suspect]
     Active Substance: PACLITAXEL
     Indication: NON-SMALL CELL LUNG CANCER
     Dosage: 290.5 MG, QCYCLE
     Route: 042
     Dates: start: 20130214, end: 20130214
  4. BLINDED PLACEBO [Suspect]
     Active Substance: INVESTIGATIONAL PRODUCT
     Indication: NON-SMALL CELL LUNG CANCER
     Dosage: 610 MG, QCYCLE
     Route: 042
     Dates: start: 20130214, end: 20130214
  5. BLINDED CARBOPLATIN [Suspect]
     Active Substance: CARBOPLATIN
     Indication: NON-SMALL CELL LUNG CANCER
     Dosage: 702 MG, QCYCLE
     Route: 042
     Dates: start: 20130214, end: 20130214
  6. BLINDED PLACEBO [Suspect]
     Active Substance: INVESTIGATIONAL PRODUCT
     Indication: NON-SMALL CELL LUNG CANCER
     Dosage: 290.5 MG, QCYCLE
     Route: 042
     Dates: start: 20130214, end: 20130214
  7. BLINDED PLACEBO [Suspect]
     Active Substance: INVESTIGATIONAL PRODUCT
     Indication: NON-SMALL CELL LUNG CANCER
     Dosage: 702 MG, QCYCLE
     Route: 042
     Dates: start: 20130214, end: 20130214
  8. BLINDED IPILIMUMAB [Suspect]
     Active Substance: IPILIMUMAB
     Indication: NON-SMALL CELL LUNG CANCER
     Dosage: 610 MG, QCYCLE
     Route: 042
     Dates: start: 20130214, end: 20130214

REACTIONS (3)
  - Renal failure [Not Recovered/Not Resolved]
  - Diarrhoea [Not Recovered/Not Resolved]
  - Pneumonia [Fatal]

NARRATIVE: CASE EVENT DATE: 20130306
